FAERS Safety Report 18996775 (Version 1)
Quarter: 2021Q1

REPORT INFORMATION
  Report Type: Spontaneous
  Country: US (occurrence: US)
  Receive Date: 20210305
  Receipt Date: 20210305
  Transmission Date: 20210420
  Serious: Yes (Hospitalization)
  Sender: FDA-Public Use
  Company Number: None

PATIENT
  Age: 65 Year
  Sex: Female

DRUGS (1)
  1. VITAMIN D [Suspect]
     Active Substance: VITAMIN D NOS
     Indication: LYMPHOMA
     Route: 048
     Dates: start: 20160624

REACTIONS (7)
  - Haemorrhage [None]
  - Pneumothorax [None]
  - Tachycardia [None]
  - Haemoptysis [None]
  - Sepsis [None]
  - Pleural effusion [None]
  - Hyperhidrosis [None]

NARRATIVE: CASE EVENT DATE: 20170220
